FAERS Safety Report 5074912-2 (Version None)
Quarter: 2006Q3

REPORT INFORMATION
  Report Type: 
  Country: None (occurrence: None)
  Receive Date: 20060809
  Receipt Date: 20060622
  Transmission Date: 20061208
  Serious: Yes (Other)
  Sender: FDA-Public Use
  Company Number: PHFR2006GB02072

PATIENT
  Age: 50 Year
  Sex: Male

DRUGS (5)
  1. CLOZARIL [Suspect]
     Indication: SCHIZOPHRENIA
     Route: 048
     Dates: start: 20060323, end: 20060622
  2. ATORVASTATIN CALCIUM [Concomitant]
     Dosage: 40 MG/DAY
     Route: 048
  3. LANSOPRAZOLE [Concomitant]
     Dosage: 30 MG/DAY
     Route: 048
  4. ASPIRIN [Concomitant]
     Dosage: 75 MG/DAY
     Route: 048
  5. METFORMIN HCL [Concomitant]
     Dosage: 500MG
     Route: 048

REACTIONS (4)
  - DIABETES MELLITUS INADEQUATE CONTROL [None]
  - ELECTROCARDIOGRAM ABNORMAL [None]
  - ELECTROCARDIOGRAM QT CORRECTED INTERVAL PROLONGED [None]
  - HEART RATE IRREGULAR [None]
